FAERS Safety Report 7053260-5 (Version None)
Quarter: 2010Q4

REPORT INFORMATION
  Report Type: 
  Country: None (occurrence: None)
  Receive Date: 20101020
  Receipt Date: 20101014
  Transmission Date: 20110411
  Serious: Yes (Hospitalization)
  Sender: FDA-Public Use
  Company Number: DE-SANOFI-AVENTIS-2010SA043257

PATIENT
  Age: 61 Year
  Sex: Female

DRUGS (2)
  1. DOCETAXEL [Suspect]
     Indication: BREAST CANCER
     Route: 041
     Dates: start: 20100714, end: 20100714
  2. GRANOCYTE [Concomitant]
     Indication: PROPHYLAXIS
     Route: 058
     Dates: start: 20100719, end: 20100723

REACTIONS (5)
  - ASCITES [None]
  - BLOOD BILIRUBIN INCREASED [None]
  - GENERALISED OEDEMA [None]
  - HEPATIC CIRRHOSIS [None]
  - JAUNDICE [None]
